FAERS Safety Report 12217884 (Version 1)
Quarter: 2016Q1

REPORT INFORMATION
  Report Type: Report from Study
  Country: US (occurrence: US)
  Receive Date: 20160329
  Receipt Date: 20160329
  Transmission Date: 20160526
  Serious: No
  Sender: FDA-Public Use
  Company Number: US-MDT-ADR-2016-00482

PATIENT
  Age: 22 Day
  Sex: Male

DRUGS (7)
  1. DILAUDID [Suspect]
     Active Substance: HYDROMORPHONE HYDROCHLORIDE
     Dosage: 0.7004 MG/DAY
     Route: 037
  2. BUPIVACAINE [Suspect]
     Active Substance: BUPIVACAINE
     Dosage: 6.7924 MG/DAY
     Route: 037
  3. DILAUDID [Suspect]
     Active Substance: HYDROMORPHONE HYDROCHLORIDE
     Dosage: 0.49944 MG/DAY
     Route: 037
  4. COMPOUNDED BACLOFEN INTRATHECAL [Suspect]
     Active Substance: BACLOFEN
     Indication: CANCER PAIN
     Dosage: 175.09 MCG/DAY
     Route: 037
  5. BUPIVACAINE [Suspect]
     Active Substance: BUPIVACAINE
     Dosage: 10.506 MG/DAY
     Route: 037
  6. BACLOFEN, UNKNOWN [Suspect]
     Active Substance: BACLOFEN
     Indication: CANCER PAIN
     Dosage: 99.89 MCG/DAY
     Route: 037
  7. BACLOFEN, UNKNOWN [Suspect]
     Active Substance: BACLOFEN
     Indication: CANCER PAIN
     Route: 037

REACTIONS (1)
  - Medical device site pain [Unknown]

NARRATIVE: CASE EVENT DATE: 20150806
